FAERS Safety Report 19130673 (Version 1)
Quarter: 2021Q2

REPORT INFORMATION
  Report Type: Spontaneous
  Country: DE (occurrence: DE)
  Receive Date: 20210413
  Receipt Date: 20210413
  Transmission Date: 20210717
  Serious: Yes (Hospitalization, Other)
  Sender: FDA-Public Use
  Company Number: NVSC2021DE080233

PATIENT
  Sex: Female

DRUGS (1)
  1. AMLODIPINE [Suspect]
     Active Substance: AMLODIPINE BESYLATE
     Indication: PRODUCT USED FOR UNKNOWN INDICATION
     Dosage: UNK
     Route: 065

REACTIONS (8)
  - Swollen tongue [Unknown]
  - Paraesthesia [Unknown]
  - Dyspnoea [Unknown]
  - Abdominal distension [Unknown]
  - Syncope [Unknown]
  - Pharyngeal swelling [Unknown]
  - Yellow skin [Unknown]
  - Dizziness [Unknown]

NARRATIVE: CASE EVENT DATE: 20210318
